FAERS Safety Report 8043227-2 (Version None)
Quarter: 2012Q1

REPORT INFORMATION
  Report Type: 
  Country: None (occurrence: None)
  Receive Date: 20120112
  Receipt Date: 20120111
  Transmission Date: 20120608
  Serious: No
  Sender: FDA-Public Use
  Company Number: US-B.I. PHARMACEUTICALS,INC./RIDGEFIELD-2012-BP-00653BP

PATIENT
  Sex: Female

DRUGS (13)
  1. TOPROL-XL [Concomitant]
     Indication: HYPERTENSION
     Dosage: 100 MG
     Route: 048
     Dates: start: 20090101
  2. AMBIEN [Concomitant]
     Indication: INSOMNIA
     Dosage: 10 MG
     Route: 048
     Dates: start: 20070101
  3. JANUVIA [Concomitant]
     Indication: DIABETES MELLITUS
     Dosage: 100 MG
     Route: 048
     Dates: start: 20090101
  4. LIVALO [Concomitant]
     Indication: BLOOD CHOLESTEROL INCREASED
     Dosage: 2 MG
     Route: 048
     Dates: start: 20111201
  5. COQ10 [Concomitant]
     Indication: SUPPLEMENTATION THERAPY
     Dosage: 100 MG
     Route: 048
     Dates: start: 20111001
  6. FISH OIL [Concomitant]
     Indication: SUPPLEMENTATION THERAPY
     Dosage: 1000 MG
     Route: 048
     Dates: start: 20090101
  7. CALCIUM CARBONATE [Concomitant]
     Indication: SUPPLEMENTATION THERAPY
     Route: 048
     Dates: start: 20020101
  8. VITAMIN D [Concomitant]
     Indication: SUPPLEMENTATION THERAPY
     Dosage: 1000 U
     Route: 048
     Dates: start: 20111001
  9. FIBERCON [Concomitant]
     Indication: DIARRHOEA
     Route: 048
     Dates: start: 20040101
  10. MAGNESIUM [Concomitant]
     Indication: SUPPLEMENTATION THERAPY
     Dosage: 400 MG
     Route: 048
     Dates: start: 20111001
  11. PRADAXA [Suspect]
     Dosage: 300 MG
     Route: 048
     Dates: start: 20111227
  12. GLUCOPHAGE XL [Concomitant]
     Indication: DIABETES MELLITUS
     Dosage: 1000 MG
     Route: 048
     Dates: start: 20020101
  13. LORTAB [Concomitant]
     Indication: PAIN
     Route: 048

REACTIONS (1)
  - OESOPHAGEAL PAIN [None]
